FAERS Safety Report 6113950-5 (Version None)
Quarter: 2009Q1

REPORT INFORMATION
  Report Type: 
  Country: None (occurrence: None)
  Receive Date: 20090312
  Receipt Date: 20090211
  Transmission Date: 20090719
  Serious: No
  Sender: FDA-Public Use
  Company Number: US-ABBOTT-09P-163-0500834-00

PATIENT
  Sex: Male
  Weight: 59.02 kg

DRUGS (15)
  1. LUPRON DEPOT [Suspect]
     Indication: PROSTATE CANCER
     Dosage: X1 DOSE
     Route: 030
     Dates: start: 20081215, end: 20081215
  2. LUPRON DEPOT [Suspect]
     Dates: start: 20081101, end: 20081101
  3. COUMADIN [Concomitant]
     Indication: ATRIAL FIBRILLATION
     Dosage: 2.5 X 4 DAYS 5 ON 3 DAYS PER WEEK
     Route: 048
  4. LOTREL [Concomitant]
     Indication: HYPERTENSION
     Dosage: 5/10
     Route: 048
  5. ZOCOR [Concomitant]
     Indication: BLOOD CHOLESTEROL INCREASED
     Route: 048
  6. VERAPAMIL [Concomitant]
     Indication: ATRIAL FIBRILLATION
     Route: 048
  7. NEXIUM [Concomitant]
     Indication: GASTROOESOPHAGEAL REFLUX DISEASE
     Route: 048
  8. COLESTIPOLE [Concomitant]
     Indication: DIARRHOEA
     Route: 048
  9. COLESTIPOLE [Concomitant]
     Indication: STRESS
  10. ADVAIR HFA [Concomitant]
     Indication: CHRONIC OBSTRUCTIVE PULMONARY DISEASE
     Dosage: 250/50
     Route: 055
  11. SPIRIVA [Concomitant]
     Indication: CHRONIC OBSTRUCTIVE PULMONARY DISEASE
     Route: 055
  12. MULITIVTAMIN SENIOR [Concomitant]
     Indication: VITAMIN SUPPLEMENTATION
     Route: 048
  13. FISH OIL [Concomitant]
     Indication: CARDIAC DISORDER
     Route: 048
  14. EFFEXOR [Concomitant]
     Indication: DEPRESSION
     Route: 048
     Dates: start: 20090101
  15. AMBIEN [Concomitant]
     Indication: INSOMNIA
     Route: 048
     Dates: start: 20090123

REACTIONS (7)
  - ASTHENIA [None]
  - CHILLS [None]
  - HOT FLUSH [None]
  - MOOD SWINGS [None]
  - NIGHT SWEATS [None]
  - TREMOR [None]
  - WEIGHT DECREASED [None]
